FAERS Safety Report 5864214-6 (Version None)
Quarter: 2008Q3

REPORT INFORMATION
  Report Type: 
  Country: None (occurrence: None)
  Receive Date: 20080829
  Receipt Date: 20080827
  Transmission Date: 20090109
  Serious: Yes (Death, Other)
  Sender: FDA-Public Use
  Company Number: FR-RB-008256-07

PATIENT
  Age: 39 Year
  Sex: Female

DRUGS (1)
  1. SUBUTEX [Suspect]
     Indication: DRUG USE FOR UNKNOWN INDICATION
     Dosage: 3 MG QAM, AND 3 MG QPM.
     Route: 065

REACTIONS (2)
  - FUNGAL INFECTION [None]
  - LUNG NEOPLASM MALIGNANT [None]
